FAERS Safety Report 13240507 (Version 1)
Quarter: 2017Q1

REPORT INFORMATION
  Report Type: Spontaneous
  Country: US (occurrence: US)
  Receive Date: 20170216
  Receipt Date: 20170216
  Transmission Date: 20170428
  Serious: No
  Sender: FDA-Public Use
  Company Number: US-RELYPSA-RLY2016003762

PATIENT
  Age: 83 Year
  Sex: Female

DRUGS (4)
  1. DILANTIN [Concomitant]
     Active Substance: PHENYTOIN
  2. SYNTHROID [Concomitant]
     Active Substance: LEVOTHYROXINE SODIUM
     Indication: THYROID DISORDER
  3. TEGRETOL [Concomitant]
     Active Substance: CARBAMAZEPINE
  4. VELTASSA [Suspect]
     Active Substance: PATIROMER
     Indication: BLOOD POTASSIUM
     Dosage: 8.4 G, QD
     Route: 048
     Dates: start: 20160812

REACTIONS (3)
  - Malaise [Recovered/Resolved]
  - Blood potassium abnormal [Unknown]
  - Blood iron decreased [Unknown]

NARRATIVE: CASE EVENT DATE: 2016
